FAERS Safety Report 4314747-9 (Version None)
Quarter: 2004Q1

REPORT INFORMATION
  Report Type: 
  Country: None (occurrence: None)
  Receive Date: 20040309
  Receipt Date: 20040309
  Transmission Date: 20041129
  Serious: Yes (Other)
  Sender: FDA-Public Use
  Company Number: None

PATIENT
  Sex: Female
  Weight: 57.6068 kg

DRUGS (2)
  1. AREDIA [Suspect]
     Indication: OSTEOPOROSIS PROPHYLAXIS
     Dosage: Q4WKS IV
     Route: 042
  2. CHEMOTHERAPY [Concomitant]

REACTIONS (3)
  - ARTHROPATHY [None]
  - NECROSIS [None]
  - PAIN IN JAW [None]
